FAERS Safety Report 21112996 (Version 9)
Quarter: 2023Q1

REPORT INFORMATION
  Report Type: Report from Study
  Country: CN (occurrence: CN)
  Receive Date: 20220721
  Receipt Date: 20230321
  Transmission Date: 20230417
  Serious: Yes (Other)
  Sender: FDA-Public Use
  Company Number: CN-TAKEDA-2021TUS039930

PATIENT
  Age: 63 Year
  Sex: Female
  Weight: 54 kg

DRUGS (58)
  1. IXAZOMIB [Suspect]
     Active Substance: IXAZOMIB
     Indication: Plasma cell myeloma
     Dosage: 4 MILLIGRAM, 1/WEEK
     Route: 048
     Dates: start: 20210516
  2. DEXAMETHASONE SODIUM PHOSPHATE [Suspect]
     Active Substance: DEXAMETHASONE SODIUM PHOSPHATE
     Indication: Plasma cell myeloma
     Dosage: 40 MILLIGRAM
     Route: 042
     Dates: start: 20210516, end: 20210613
  3. DEXAMETHASONE ACETATE [Suspect]
     Active Substance: DEXAMETHASONE ACETATE
     Indication: Plasma cell myeloma
     Dosage: 40 MILLIGRAM
     Route: 048
     Dates: start: 20210516, end: 20210530
  4. DEXAMETHASONE ACETATE [Suspect]
     Active Substance: DEXAMETHASONE ACETATE
     Dosage: 20 MILLIGRAM, 1/WEEK
     Route: 048
     Dates: start: 20210814, end: 20210827
  5. DOXORUBICIN HYDROCHLORIDE [Suspect]
     Active Substance: DOXORUBICIN HYDROCHLORIDE
     Indication: Plasma cell myeloma
     Dosage: 40 MILLIGRAM
     Route: 042
     Dates: start: 20210516
  6. CYCLOPHOSPHAMIDE [Suspect]
     Active Substance: CYCLOPHOSPHAMIDE
     Indication: Plasma cell myeloma
     Dosage: 2.3 GRAM, QD
     Route: 042
     Dates: start: 20210904, end: 20210905
  7. HEPARIN SODIUM [Concomitant]
     Active Substance: HEPARIN SODIUM
     Indication: Flushing
     Dosage: UNK, 1/WEEK
     Route: 042
     Dates: start: 20210513, end: 20210523
  8. HEPARIN SODIUM [Concomitant]
     Active Substance: HEPARIN SODIUM
     Dosage: UNK, 1/WEEK
     Route: 042
     Dates: start: 20210612, end: 20210615
  9. SODIUM CHLORIDE [Concomitant]
     Active Substance: SODIUM CHLORIDE
     Indication: Flushing
     Dosage: 10 MILLILITER, TID
     Route: 042
     Dates: start: 20210513, end: 20210523
  10. SODIUM CHLORIDE [Concomitant]
     Active Substance: SODIUM CHLORIDE
     Dosage: 100 MILLILITER
     Route: 042
     Dates: start: 20210515, end: 20210515
  11. SODIUM CHLORIDE [Concomitant]
     Active Substance: SODIUM CHLORIDE
     Dosage: 10 MILLILITER, TID
     Route: 042
     Dates: start: 20210612, end: 20210612
  12. AMMONIUM GLYCYRRHIZATE\CYSTEINE [Concomitant]
     Active Substance: AMMONIUM GLYCYRRHIZATE\CYSTEINE
     Indication: Prophylaxis
     Dosage: 100 MILLILITER, QD
     Route: 042
     Dates: start: 20210514, end: 20210523
  13. AMMONIUM GLYCYRRHIZATE\CYSTEINE [Concomitant]
     Active Substance: AMMONIUM GLYCYRRHIZATE\CYSTEINE
     Dosage: 100 MILLILITER, QD
     Route: 042
     Dates: start: 20210613, end: 20210615
  14. LANSOPRAZOLE [Concomitant]
     Active Substance: LANSOPRAZOLE
     Indication: Prophylaxis
     Dosage: 30 MILLIGRAM, QD
     Route: 042
     Dates: start: 20210515, end: 20210523
  15. LANSOPRAZOLE [Concomitant]
     Active Substance: LANSOPRAZOLE
     Dosage: 30 MILLIGRAM, QD
     Route: 042
     Dates: start: 20210903, end: 20210906
  16. LANSOPRAZOLE [Concomitant]
     Active Substance: LANSOPRAZOLE
     Dosage: 30 MILLIGRAM, QD
     Route: 042
     Dates: start: 20210613, end: 20210615
  17. LANSOPRAZOLE [Concomitant]
     Active Substance: LANSOPRAZOLE
     Dosage: 30 MILLIGRAM, QD
     Route: 042
     Dates: start: 20210914, end: 20210919
  18. SODIUM BICARBONATE [Concomitant]
     Active Substance: SODIUM BICARBONATE
     Indication: Prophylaxis
     Dosage: 500 MILLIGRAM, TID
     Route: 048
     Dates: start: 20210515, end: 20210523
  19. SODIUM BICARBONATE [Concomitant]
     Active Substance: SODIUM BICARBONATE
     Dosage: 100 MILLIGRAM, QD
     Route: 048
     Dates: start: 20210904, end: 20210906
  20. SODIUM BICARBONATE [Concomitant]
     Active Substance: SODIUM BICARBONATE
     Dosage: 500 MILLIGRAM, TID
     Route: 048
     Dates: start: 20210613, end: 20210614
  21. CALCITRIOL [Concomitant]
     Active Substance: CALCITRIOL
     Indication: Osteoporosis
     Dosage: 0.25 MICROGRAM, QD
     Route: 048
     Dates: start: 20210515, end: 20210913
  22. TROPISETRON HYDROCHLORIDE [Concomitant]
     Active Substance: TROPISETRON HYDROCHLORIDE
     Indication: Antiemetic supportive care
     Dosage: 4 MILLIGRAM, QD
     Route: 042
     Dates: start: 20210515, end: 20210521
  23. TROPISETRON HYDROCHLORIDE [Concomitant]
     Active Substance: TROPISETRON HYDROCHLORIDE
     Dosage: 4 MILLIGRAM, QD
     Route: 042
     Dates: start: 20210613, end: 20210614
  24. TRAMADOL HYDROCHLORIDE [Concomitant]
     Active Substance: TRAMADOL HYDROCHLORIDE
     Indication: Prophylaxis
     Dosage: 0.1 GRAM, BID
     Route: 048
     Dates: start: 20210516, end: 20210523
  25. TRAMADOL HYDROCHLORIDE [Concomitant]
     Active Substance: TRAMADOL HYDROCHLORIDE
     Dosage: 0.1 GRAM, TID
     Route: 048
     Dates: start: 20210613, end: 20210622
  26. LIDOCAINE HYDROCHLORIDE [Concomitant]
     Active Substance: LIDOCAINE HYDROCHLORIDE
     Indication: Anaesthesia
     Dosage: 5 MILLILITER
     Route: 061
     Dates: start: 20210513, end: 20210513
  27. LIDOCAINE HYDROCHLORIDE [Concomitant]
     Active Substance: LIDOCAINE HYDROCHLORIDE
     Dosage: 5 MILLILITER
     Route: 061
     Dates: start: 20210515, end: 20210515
  28. ZOLEDRONIC ACID [Concomitant]
     Active Substance: ZOLEDRONIC ACID
     Indication: Osteoporosis
     Dosage: 4 MILLIGRAM
     Route: 042
     Dates: start: 20210516, end: 20210516
  29. DEXTROSE [Concomitant]
     Active Substance: DEXTROSE
     Indication: Flushing
     Dosage: 50 MILLILITER
     Route: 042
     Dates: start: 20210516, end: 20210516
  30. DEXTROSE [Concomitant]
     Active Substance: DEXTROSE
     Dosage: 50 MILLILITER
     Route: 042
     Dates: start: 20210613, end: 20210613
  31. LEVOFLOXACIN [Concomitant]
     Active Substance: LEVOFLOXACIN
     Indication: Conjunctivitis
     Dosage: 24.4 MILLIGRAM
     Dates: start: 20210520, end: 20210520
  32. LEVOFLOXACIN [Concomitant]
     Active Substance: LEVOFLOXACIN
     Dosage: 24.4 MILLIGRAM
     Dates: start: 20210523, end: 20210523
  33. FUROSEMIDE [Concomitant]
     Active Substance: FUROSEMIDE
     Indication: Polyuria
     Dosage: 20 MILLIGRAM, QD
     Route: 042
     Dates: start: 20210904, end: 20210906
  34. ACLASTA [Concomitant]
     Active Substance: ZOLEDRONIC ACID
     Indication: Osteoporosis
     Dosage: 4 MILLIGRAM, QD
     Route: 042
     Dates: start: 20210904, end: 20210904
  35. AZASETRON HYDROCHLORIDE [Concomitant]
     Active Substance: AZASETRON HYDROCHLORIDE
     Indication: Haematopoietic stem cell mobilisation
     Dosage: 10 MILLIGRAM, QD
     Route: 042
     Dates: start: 20210904, end: 20210904
  36. AZASETRON HYDROCHLORIDE [Concomitant]
     Active Substance: AZASETRON HYDROCHLORIDE
     Indication: Prophylaxis of nausea and vomiting
     Dosage: 10 MILLIGRAM, BID
     Route: 042
     Dates: start: 20210905, end: 20210905
  37. MESNA [Concomitant]
     Active Substance: MESNA
     Indication: Prophylaxis
     Dosage: 0.8 GRAM, TID
     Route: 042
     Dates: start: 20210904, end: 20210905
  38. METHYLCOBALAMIN [Concomitant]
     Active Substance: METHYLCOBALAMIN
     Indication: Nervous system disorder
     Dosage: 0.5 MILLIGRAM, TID
     Route: 048
     Dates: start: 20210806, end: 20210816
  39. METHYLCOBALAMIN [Concomitant]
     Active Substance: METHYLCOBALAMIN
     Dosage: 0.5 MILLIGRAM, TID
     Route: 048
     Dates: start: 20210809, end: 20210816
  40. ACYCLOVIR [Concomitant]
     Active Substance: ACYCLOVIR
     Indication: Herpes zoster
     Dosage: 0.4 GRAM, TID
     Route: 048
     Dates: start: 20210809, end: 20210816
  41. ACYCLOVIR [Concomitant]
     Active Substance: ACYCLOVIR
     Dosage: 0.4 GRAM, QD
     Route: 048
     Dates: start: 20220405
  42. ACYCLOVIR [Concomitant]
     Active Substance: ACYCLOVIR
     Dosage: 0.4 GRAM, QD
     Route: 048
     Dates: start: 20210523, end: 20210530
  43. ACYCLOVIR [Concomitant]
     Active Substance: ACYCLOVIR
     Dosage: 0.4 GRAM, TID
     Route: 048
     Dates: start: 20210521, end: 20210523
  44. ACYCLOVIR [Concomitant]
     Active Substance: ACYCLOVIR
     Dosage: 0.4 GRAM, TID
     Route: 048
     Dates: start: 20210613, end: 20210615
  45. ACYCLOVIR [Concomitant]
     Active Substance: ACYCLOVIR
     Dosage: 0.4 GRAM, TID
     Route: 048
     Dates: start: 20220405, end: 20220412
  46. ACYCLOVIR [Concomitant]
     Active Substance: ACYCLOVIR
     Dosage: 0.4 GRAM, TID
     Route: 048
     Dates: start: 20220509, end: 20220516
  47. ACYCLOVIR [Concomitant]
     Active Substance: ACYCLOVIR
     Dosage: 0.4 GRAM, QD
     Route: 048
     Dates: start: 20220711, end: 20220810
  48. ACYCLOVIR [Concomitant]
     Active Substance: ACYCLOVIR
     Dosage: 0.4 GRAM, QD
     Route: 048
     Dates: start: 20220819
  49. ACYCLOVIR [Concomitant]
     Active Substance: ACYCLOVIR
     Dosage: 0.4 GRAM, QD
     Route: 048
     Dates: start: 20220124, end: 20220131
  50. ACYCLOVIR [Concomitant]
     Active Substance: ACYCLOVIR
     Dosage: 0.4 GRAM, QD
     Route: 048
     Dates: start: 20220207, end: 20220214
  51. ACYCLOVIR [Concomitant]
     Active Substance: ACYCLOVIR
     Dosage: 0.4 GRAM, QD
     Route: 048
     Dates: start: 20220307, end: 20220314
  52. LOSEC [Concomitant]
     Active Substance: OMEPRAZOLE
     Indication: Prophylaxis
     Dosage: 20 MILLIGRAM, QD
     Route: 048
     Dates: start: 20210809, end: 20210816
  53. LOSEC [Concomitant]
     Active Substance: OMEPRAZOLE
     Dosage: 20 MILLIGRAM, QD
     Route: 048
     Dates: start: 20210906, end: 20210913
  54. CALTRATE WITH VITAMIN D [Concomitant]
     Active Substance: CALCIUM CARBONATE\CHOLECALCIFEROL
     Indication: Osteoporosis
     Dosage: UNK, QD
     Route: 048
     Dates: start: 20210809, end: 20210816
  55. CALTRATE WITH VITAMIN D [Concomitant]
     Active Substance: CALCIUM CARBONATE\CHOLECALCIFEROL
     Dosage: UNK, QD
     Route: 048
     Dates: start: 20210906, end: 20210913
  56. CALTRATE WITH VITAMIN D [Concomitant]
     Active Substance: CALCIUM CARBONATE\CHOLECALCIFEROL
     Dosage: UNK, QD
     Route: 048
     Dates: start: 20210909, end: 20210926
  57. PANTOPRAZOLE SODIUM [Concomitant]
     Active Substance: PANTOPRAZOLE SODIUM
     Indication: Prophylaxis
     Dosage: 40 MILLIGRAM, QD
     Route: 048
     Dates: start: 20210513, end: 20210530
  58. POTASSIUM CHLORIDE [Concomitant]
     Active Substance: POTASSIUM CHLORIDE
     Indication: Prophylaxis
     Dosage: 30 MILLILITER, BID
     Route: 048
     Dates: start: 20210917, end: 20210919

REACTIONS (12)
  - Agranulocytosis [Recovered/Resolved]
  - Myelosuppression [Recovered/Resolved]
  - Spinal compression fracture [Not Recovered/Not Resolved]
  - White blood cell count decreased [Recovered/Resolved]
  - Abdominal distension [Recovered/Resolved]
  - Anaemia [Recovered/Resolved]
  - Diarrhoea [Not Recovered/Not Resolved]
  - Vomiting [Recovered/Resolved]
  - Constipation [Recovered/Resolved]
  - Hyperuricaemia [Recovered/Resolved]
  - Hyperlipidaemia [Not Recovered/Not Resolved]
  - Off label use [Unknown]

NARRATIVE: CASE EVENT DATE: 20210520
